FAERS Safety Report 6805506-3 (Version None)
Quarter: 2010Q2

REPORT INFORMATION
  Report Type: 
  Country: None (occurrence: None)
  Receive Date: 20100628
  Receipt Date: 20071211
  Transmission Date: 20101027
  Serious: No
  Sender: FDA-Public Use
  Company Number: US-PFIZER INC-2007104421

PATIENT
  Sex: Female
  Weight: 50 kg

DRUGS (3)
  1. GENOTROPIN [Suspect]
     Indication: BODY HEIGHT BELOW NORMAL
     Dosage: 2.4,DAILY
     Dates: start: 20071116
  2. LEVOTHYROXINE SODIUM [Concomitant]
  3. LORATADINE [Concomitant]

REACTIONS (1)
  - INJECTION SITE PAIN [None]
